FAERS Safety Report 21774978 (Version 2)
Quarter: 2023Q1

REPORT INFORMATION
  Report Type: Spontaneous
  Country: AT (occurrence: AT)
  Receive Date: 20221225
  Receipt Date: 20230106
  Transmission Date: 20230418
  Serious: Yes (Other)
  Sender: FDA-Public Use
  Company Number: AT-BAXTER-2022BAX025959

PATIENT
  Age: 70 Year
  Sex: Male

DRUGS (23)
  1. MELPHALAN [Suspect]
     Active Substance: MELPHALAN
     Indication: Chemotherapy
     Dosage: UNK
     Route: 065
     Dates: start: 201509
  2. BELANTAMAB MAFODOTIN [Suspect]
     Active Substance: BELANTAMAB MAFODOTIN
     Indication: Bone lesion
     Dosage: UNK
     Route: 065
     Dates: start: 202209
  3. BELANTAMAB MAFODOTIN [Suspect]
     Active Substance: BELANTAMAB MAFODOTIN
     Indication: Plasma cell myeloma
  4. CYCLOPHOSPHAMIDE [Suspect]
     Active Substance: CYCLOPHOSPHAMIDE
     Indication: Plasma cell myeloma
     Dosage: UNK (1ST LINE VCD)
     Route: 065
     Dates: start: 201505, end: 201507
  5. CYCLOPHOSPHAMIDE [Suspect]
     Active Substance: CYCLOPHOSPHAMIDE
     Indication: Haematopoietic stem cell mobilisation
     Dosage: UNK
     Route: 065
     Dates: start: 201508
  6. CYCLOPHOSPHAMIDE [Suspect]
     Active Substance: CYCLOPHOSPHAMIDE
     Indication: Bone lesion
     Dosage: UNK (4 TH LINE)
     Route: 065
     Dates: start: 202107
  7. DARZALEX [Suspect]
     Active Substance: DARATUMUMAB
     Indication: Plasma cell myeloma
     Dosage: 3 RD LINE
     Route: 065
     Dates: start: 201901
  8. DARZALEX [Suspect]
     Active Substance: DARATUMUMAB
     Indication: Bone lesion
  9. DEXAMETHASONE [Suspect]
     Active Substance: DEXAMETHASONE
     Indication: Plasma cell myeloma
     Dosage: UNK (1ST LINE VCD)
     Route: 065
     Dates: start: 201505, end: 201507
  10. DEXAMETHASONE [Suspect]
     Active Substance: DEXAMETHASONE
     Indication: Bone lesion
     Dosage: UNK (2ND LINE)
     Route: 065
     Dates: start: 201706, end: 201901
  11. DEXAMETHASONE [Suspect]
     Active Substance: DEXAMETHASONE
     Dosage: UNK (3RD LINE)
     Route: 065
     Dates: start: 201901, end: 202107
  12. DEXAMETHASONE [Suspect]
     Active Substance: DEXAMETHASONE
     Dosage: UNK (4 TH LINE)
     Route: 065
     Dates: start: 202107, end: 202108
  13. DEXAMETHASONE [Suspect]
     Active Substance: DEXAMETHASONE
     Dosage: UNK
     Route: 065
     Dates: start: 202108
  14. ELOTUZUMAB [Suspect]
     Active Substance: ELOTUZUMAB
     Indication: Plasma cell myeloma
     Dosage: UNK
     Route: 065
     Dates: start: 202108
  15. ELOTUZUMAB [Suspect]
     Active Substance: ELOTUZUMAB
     Indication: Bone lesion
  16. NINLARO [Suspect]
     Active Substance: IXAZOMIB CITRATE
     Indication: Plasma cell myeloma
     Dosage: 4 TH LINE
     Route: 065
     Dates: start: 202107
  17. NINLARO [Suspect]
     Active Substance: IXAZOMIB CITRATE
     Indication: Bone lesion
  18. POMALIDOMIDE [Suspect]
     Active Substance: POMALIDOMIDE
     Indication: Plasma cell myeloma
     Dosage: UNK
     Route: 065
     Dates: start: 202108
  19. POMALIDOMIDE [Suspect]
     Active Substance: POMALIDOMIDE
     Indication: Bone lesion
  20. REVLIMID [Suspect]
     Active Substance: LENALIDOMIDE
     Indication: Bone lesion
     Dosage: 2 ND LINE
     Route: 065
     Dates: start: 201706, end: 201901
  21. REVLIMID [Suspect]
     Active Substance: LENALIDOMIDE
     Indication: Plasma cell myeloma
     Dosage: 3RD LINE
     Route: 065
     Dates: start: 201901
  22. VELCADE [Suspect]
     Active Substance: BORTEZOMIB
     Indication: Bone lesion
     Dosage: UNK (1ST LINE VCD)
     Route: 065
     Dates: start: 201505
  23. VELCADE [Suspect]
     Active Substance: BORTEZOMIB
     Indication: Plasma cell myeloma

REACTIONS (4)
  - Neoplasm progression [Unknown]
  - Keratopathy [Unknown]
  - Toxicity to various agents [Unknown]
  - Therapy partial responder [Unknown]

NARRATIVE: CASE EVENT DATE: 20170601
